FAERS Safety Report 13886291 (Version 1)
Quarter: 2017Q3

REPORT INFORMATION
  Report Type: Spontaneous
  Country: FR (occurrence: FR)
  Receive Date: 20170821
  Receipt Date: 20170821
  Transmission Date: 20171127
  Serious: Yes (Other)
  Sender: FDA-Public Use
  Company Number: FR-PFIZER INC-2017356398

PATIENT
  Age: 14 Year
  Sex: Female
  Weight: 39 kg

DRUGS (3)
  1. VINCRISTINE SULFATE. [Suspect]
     Active Substance: VINCRISTINE SULFATE
     Dosage: 1.5 MG, UNK
  2. VINCRISTINE SULFATE. [Suspect]
     Active Substance: VINCRISTINE SULFATE
     Dosage: 2 MG, UNK (FOUR INFUSIONS)
     Route: 042
  3. VORICONAZOLE. [Suspect]
     Active Substance: VORICONAZOLE
     Indication: BRONCHOPULMONARY ASPERGILLOSIS
     Dosage: 300 MG/12 HOURS
     Route: 042

REACTIONS (8)
  - Disorientation [Unknown]
  - Hallucination, auditory [Unknown]
  - Hypoaesthesia [Unknown]
  - Confusional state [Unknown]
  - Musculoskeletal pain [Unknown]
  - Arthralgia [Unknown]
  - Hallucination, visual [Unknown]
  - Neuralgia [Unknown]
